FAERS Safety Report 7636450-X (Version None)
Quarter: 2011Q3

REPORT INFORMATION
  Report Type: 
  Country: None (occurrence: None)
  Receive Date: 20110726
  Receipt Date: 20110722
  Transmission Date: 20111222
  Serious: Yes (Other)
  Sender: FDA-Public Use
  Company Number: SE-BRISTOL-MYERS SQUIBB COMPANY-15872518

PATIENT
  Age: 21 Year
  Sex: Female

DRUGS (2)
  1. METHOTREXATE TABS [Concomitant]
  2. ORENCIA [Suspect]
     Indication: JUVENILE ARTHRITIS
     Route: 042
     Dates: start: 20100907, end: 20101201

REACTIONS (2)
  - ANAL FISTULA [None]
  - ANAL ABSCESS [None]
